FAERS Safety Report 10425731 (Version 1)
Quarter: 2014Q3

REPORT INFORMATION
  Report Type: Spontaneous
  Country: US (occurrence: US)
  Receive Date: 20140903
  Receipt Date: 20140903
  Transmission Date: 20150326
  Serious: Yes (Hospitalization)
  Sender: FDA-Public Use
  Company Number: US-AUROBINDO-AUR-APL-2014-09288

PATIENT
  Age: 18 Year
  Sex: Female

DRUGS (3)
  1. MELATONIN [Suspect]
     Active Substance: MELATONIN
     Indication: PRODUCT USED FOR UNKNOWN INDICATION
     Dosage: 25 MG, UNK
     Route: 048
  2. LAMOTRIGINE. [Suspect]
     Active Substance: LAMOTRIGINE
     Indication: PRODUCT USED FOR UNKNOWN INDICATION
     Dosage: 600 MG, UNK
     Route: 048
  3. VENLAFAXINE HYDROCHLORIDE EXTENDED-RELEASE CAPSULES 150MG [Suspect]
     Active Substance: VENLAFAXINE HYDROCHLORIDE
     Indication: PRODUCT USED FOR UNKNOWN INDICATION
     Dosage: 150 MG, (TOOK 22 CAPSULES)

REACTIONS (14)
  - Intentional overdose [None]
  - Tachycardia [Recovered/Resolved]
  - Nystagmus [None]
  - Pupillary reflex impaired [None]
  - Suicide attempt [Recovered/Resolved]
  - Overdose [Recovered/Resolved]
  - Feeling hot [Recovered/Resolved]
  - Sinus tachycardia [None]
  - Convulsion [Recovered/Resolved]
  - Drug screen positive [None]
  - Dizziness [Recovered/Resolved]
  - Feeling jittery [Recovered/Resolved]
  - Nausea [Recovered/Resolved]
  - Tremor [None]
